FAERS Safety Report 6305230-X (Version None)
Quarter: 2009Q3

REPORT INFORMATION
  Report Type: 
  Country: None (occurrence: None)
  Receive Date: 20090810
  Receipt Date: 20090810
  Transmission Date: 20100115
  Serious: Yes (Other)
  Sender: FDA-Public Use
  Company Number: None

PATIENT
  Age: 37 Year
  Sex: Male

DRUGS (4)
  1. REMICADE [Suspect]
     Indication: CROHN'S DISEASE
     Dosage: 5MG/KG IV
     Route: 042
     Dates: start: 20080715
  2. REMICADE [Suspect]
     Indication: CROHN'S DISEASE
     Dosage: 5MG/KG IV
     Route: 042
     Dates: start: 20080801
  3. REMICADE [Suspect]
     Indication: CROHN'S DISEASE
     Dosage: 5MG/KG IV
     Route: 042
     Dates: start: 20080904
  4. REMICADE [Suspect]
     Indication: CROHN'S DISEASE
     Dosage: 5MG/KG IV
     Route: 042
     Dates: start: 20081201

REACTIONS (1)
  - DIFFUSE LARGE B-CELL LYMPHOMA [None]
